FAERS Safety Report 11878106 (Version 1)
Quarter: 2015Q4

REPORT INFORMATION
  Report Type: Spontaneous
  Country: US (occurrence: None)
  Receive Date: 20151229
  Receipt Date: 20151229
  Transmission Date: 20160305
  Serious: Yes (Hospitalization, Disabling)
  Sender: FDA-Public Use
  Company Number: None

PATIENT
  Age: 35 Year
  Sex: Male

DRUGS (2)
  1. LYRICA [Suspect]
     Active Substance: PREGABALIN
     Indication: NEURALGIA
     Dosage: 1 PILL
     Route: 048
     Dates: start: 20141002, end: 20141007
  2. LYRICA [Suspect]
     Active Substance: PREGABALIN
     Indication: SKIN INJURY
     Dosage: 1 PILL
     Route: 048
     Dates: start: 20141002, end: 20141007

REACTIONS (6)
  - Abdominal distension [None]
  - Impaired work ability [None]
  - Early satiety [None]
  - Discomfort [None]
  - Weight decreased [None]
  - General physical health deterioration [None]

NARRATIVE: CASE EVENT DATE: 20141003
